FAERS Safety Report 14083086 (Version 2)
Quarter: 2017Q4

REPORT INFORMATION
  Report Type: Spontaneous
  Country: PL (occurrence: PL)
  Receive Date: 20171013
  Receipt Date: 20171027
  Transmission Date: 20180321
  Serious: Yes (Death, Life-Threatening, Other)
  Sender: FDA-Public Use
  Company Number: PL-BAYER-2017-197963

PATIENT
  Age: 54 Year
  Sex: Male

DRUGS (2)
  1. ULTRAVIST [Suspect]
     Active Substance: IOPROMIDE
     Indication: COMPUTERISED TOMOGRAM THORAX
     Dosage: 80 ML, ONCE
     Dates: start: 20171009, end: 20171009
  2. ULTRAVIST [Suspect]
     Active Substance: IOPROMIDE
     Indication: TUBERCULOSIS

REACTIONS (6)
  - Cardiac arrest [Recovered/Resolved]
  - Acute kidney injury [Fatal]
  - Cardiac arrest [Recovered/Resolved]
  - Blood creatinine increased [None]
  - Retching [None]
  - Seizure [None]

NARRATIVE: CASE EVENT DATE: 201710
